FAERS Safety Report 12714591 (Version 2)
Quarter: 2016Q3

REPORT INFORMATION
  Report Type: Spontaneous
  Country: BR (occurrence: BR)
  Receive Date: 20160905
  Receipt Date: 20160922
  Transmission Date: 20161109
  Serious: Yes (Hospitalization)
  Sender: FDA-Public Use
  Company Number: US-ASTRAZENECA-2016SE94256

PATIENT
  Age: 78 Year
  Sex: Male
  Weight: 86 kg

DRUGS (5)
  1. ONBRIZE [Concomitant]
     Active Substance: INDACATEROL MALEATE
     Indication: CHRONIC OBSTRUCTIVE PULMONARY DISEASE
     Dosage: UNK
  2. SPIRIVA [Concomitant]
     Active Substance: TIOTROPIUM BROMIDE MONOHYDRATE
     Indication: CHRONIC OBSTRUCTIVE PULMONARY DISEASE
     Dosage: UNK
  3. DAXAS [Suspect]
     Active Substance: ROFLUMILAST
     Indication: CHRONIC OBSTRUCTIVE PULMONARY DISEASE
     Dosage: EVERY DAY
     Route: 048
     Dates: start: 20160826, end: 20160826
  4. NASONEX [Concomitant]
     Active Substance: MOMETASONE FUROATE
     Dosage: UNK
  5. DUOVENT [Concomitant]
     Active Substance: FENOTEROL HYDROBROMIDE
     Indication: CHRONIC OBSTRUCTIVE PULMONARY DISEASE
     Dosage: UNK

REACTIONS (8)
  - Pneumonia [Recovered/Resolved]
  - Dehydration [Recovered/Resolved]
  - Back pain [Recovered/Resolved]
  - Asthenia [Recovered/Resolved]
  - Dyspnoea [Recovered/Resolved]
  - Musculoskeletal chest pain [Recovered/Resolved]
  - Abdominal pain [Recovered/Resolved]
  - Dry mouth [Recovered/Resolved]

NARRATIVE: CASE EVENT DATE: 20160827
